FAERS Safety Report 4724104-9 (Version None)
Quarter: 2005Q3

REPORT INFORMATION
  Report Type: 
  Country: None (occurrence: None)
  Receive Date: 20050722
  Receipt Date: 20050714
  Transmission Date: 20060218
  Serious: No
  Sender: FDA-Public Use
  Company Number: ZONI002189

PATIENT
  Age: 13 Year
  Sex: Male

DRUGS (2)
  1. ZONISAMIDE [Suspect]
     Indication: EPILEPSY
     Dosage: 75 MG, ORAL
     Route: 048
     Dates: start: 20030703
  2. VALPROATE SODIUM [Concomitant]

REACTIONS (1)
  - NEPHROLITHIASIS [None]
